FAERS Safety Report 5688824-4 (Version None)
Quarter: 2008Q1

REPORT INFORMATION
  Report Type: 
  Country: None (occurrence: None)
  Receive Date: 20080331
  Receipt Date: 20011210
  Transmission Date: 20080703
  Serious: Yes (Death, Other)
  Sender: FDA-Public Use
  Company Number: FR-ROCHE-303276

PATIENT
  Age: 24 Year
  Sex: Male

DRUGS (7)
  1. VALIUM [Suspect]
     Route: 048
     Dates: end: 20010723
  2. LEXOMIL [Suspect]
     Route: 048
     Dates: end: 20010723
  3. TRANXENE [Suspect]
     Route: 048
     Dates: end: 20010723
  4. SERESTA [Suspect]
     Route: 048
     Dates: end: 20010723
  5. COCAINE [Suspect]
     Route: 065
  6. CANNABINOIDS [Suspect]
     Route: 065
  7. ALCOHOL [Suspect]
     Route: 065

REACTIONS (2)
  - DEATH [None]
  - OVERDOSE [None]
